FAERS Safety Report 7041882-7 (Version None)
Quarter: 2010Q4

REPORT INFORMATION
  Report Type: 
  Country: None (occurrence: None)
  Receive Date: 20101013
  Receipt Date: 20100419
  Transmission Date: 20110411
  Serious: No
  Sender: FDA-Public Use
  Company Number: US-ASTRAZENECA-2010SE17555

PATIENT
  Age: 85 Year
  Sex: Male
  Weight: 117.9 kg

DRUGS (3)
  1. SYMBICORT [Suspect]
     Indication: ASTHMA
     Dosage: 160/4.5 MCG TWO TIMES A DAY
     Route: 055
     Dates: start: 20100413, end: 20100414
  2. PROAIR HFA [Concomitant]
  3. COMBIVENT [Concomitant]

REACTIONS (3)
  - BEDRIDDEN [None]
  - MUSCLE SPASMS [None]
  - NAUSEA [None]
